FAERS Safety Report 21155145 (Version 2)
Quarter: 2022Q3

REPORT INFORMATION
  Report Type: Spontaneous
  Country: US (occurrence: US)
  Receive Date: 20220801
  Receipt Date: 20220816
  Transmission Date: 20221027
  Serious: Yes (Hospitalization, Other)
  Sender: FDA-Public Use
  Company Number: US-ALKEM LABORATORIES LIMITED-US-ALKEM-2022-07822

PATIENT
  Age: 17 Year
  Sex: Female

DRUGS (1)
  1. BENZONATATE [Suspect]
     Active Substance: BENZONATATE
     Indication: Cough
     Dosage: UNK
     Route: 065

REACTIONS (6)
  - Cardiac arrest [Unknown]
  - Ventricular fibrillation [Unknown]
  - Overdose [Unknown]
  - Electrocardiogram QRS complex shortened [Unknown]
  - Electrocardiogram QT prolonged [Unknown]
  - Seizure [Unknown]
